FAERS Safety Report 5958271-6 (Version None)
Quarter: 2008Q4

REPORT INFORMATION
  Report Type: 
  Country: None (occurrence: None)
  Receive Date: 20081119
  Receipt Date: 20081112
  Transmission Date: 20090506
  Serious: Yes (Other)
  Sender: FDA-Public Use
  Company Number: US-ELI_LILLY_AND_COMPANY-US200811003294

PATIENT
  Sex: Female

DRUGS (4)
  1. HUMALOG [Suspect]
     Dosage: 10 U, UNK
  2. VITAMIN B [Concomitant]
     Dosage: 50000 U, MONTHLY (1/M)
  3. VITAMIN D [Concomitant]
     Dosage: UNK, 3/W
  4. NEURONTIN [Concomitant]
     Indication: DIABETIC NEUROPATHY

REACTIONS (5)
  - DIABETIC NEUROPATHY [None]
  - FOOT FRACTURE [None]
  - LOWER LIMB FRACTURE [None]
  - RENAL FAILURE [None]
  - TENDON INJURY [None]
